FAERS Safety Report 7685657-4 (Version None)
Quarter: 2011Q3

REPORT INFORMATION
  Report Type: 
  Country: None (occurrence: None)
  Receive Date: 20110816
  Receipt Date: 20110504
  Transmission Date: 20111222
  Serious: No
  Sender: FDA-Public Use
  Company Number: US-BAYER-2011-039098

PATIENT
  Sex: Female

DRUGS (1)
  1. MIRENA [Suspect]

REACTIONS (3)
  - DEVICE DEPLOYMENT ISSUE [None]
  - DEVICE EXPULSION [None]
  - ABDOMINAL PAIN [None]
